FAERS Safety Report 18341359 (Version 2)
Quarter: 2020Q4

REPORT INFORMATION
  Report Type: Report from Study
  Country: BR (occurrence: BR)
  Receive Date: 20201003
  Receipt Date: 20201008
  Transmission Date: 20210113
  Serious: Yes (Life-Threatening, Hospitalization, Other)
  Sender: FDA-Public Use
  Company Number: NVSC2020BR267805

PATIENT
  Age: 69 Year
  Sex: Female
  Weight: 100 kg

DRUGS (7)
  1. DIOVAN [Suspect]
     Active Substance: VALSARTAN
     Dosage: 320 MG, QD
     Route: 048
  2. ENTRESTO [Concomitant]
     Active Substance: SACUBITRIL\VALSARTAN
     Dosage: 51 MG, BID (IN MORNING AND AT NIGHT)
     Route: 048
     Dates: start: 20201001
  3. EXFORGE [Concomitant]
     Active Substance: AMLODIPINE BESYLATE\VALSARTAN
     Dosage: 160/ 12.5/ 5 MG, QD
     Route: 048
     Dates: end: 20200930
  4. EXFORGE [Concomitant]
     Active Substance: AMLODIPINE BESYLATE\VALSARTAN
     Indication: HYPERTENSION
     Dosage: UNK (160+12 AND HALF+5)
     Route: 065
     Dates: end: 20200929
  5. DIOVAN [Suspect]
     Active Substance: VALSARTAN
     Indication: HYPERTENSION
     Dosage: 160 MG, QD
     Route: 048
  6. ENTRESTO [Concomitant]
     Active Substance: SACUBITRIL\VALSARTAN
     Indication: HYPERTENSION
     Dosage: 49 MG, BID (IN MORNING AND AT NIGHT)
     Route: 048
     Dates: start: 20201001
  7. ALENIA [Concomitant]
     Indication: PRODUCT USED FOR UNKNOWN INDICATION
     Dosage: UNK
     Route: 065

REACTIONS (8)
  - Cholelithiasis [Recovered/Resolved]
  - Heart rate irregular [Not Recovered/Not Resolved]
  - Myocardial infarction [Recovered/Resolved]
  - Asthenia [Not Recovered/Not Resolved]
  - Venous occlusion [Recovered/Resolved]
  - Malaise [Recovered/Resolved]
  - Gastritis [Not Recovered/Not Resolved]
  - Blood pressure increased [Recovered/Resolved]

NARRATIVE: CASE EVENT DATE: 20200918
